FAERS Safety Report 7493210-0 (Version None)
Quarter: 2011Q2

REPORT INFORMATION
  Report Type: 
  Country: None (occurrence: None)
  Receive Date: 20110520
  Receipt Date: 20110511
  Transmission Date: 20111010
  Serious: Yes (Death)
  Sender: FDA-Public Use
  Company Number: US-JNJFOC-20080803666

PATIENT
  Age: 4 Month
  Sex: Female

DRUGS (8)
  1. ATROPINE [Suspect]
     Indication: COUGH
  2. PSEUDOEPHEDRINE HCL [Suspect]
     Indication: NASOPHARYNGITIS
  3. DEXTROMETHORPHAN HYDROBROMIDE [Suspect]
     Indication: COUGH
  4. CARBINOXAMINE MALEATE [Suspect]
     Indication: NASOPHARYNGITIS
  5. DEXTROMETHORPHAN HYDROBROMIDE [Suspect]
     Indication: NASOPHARYNGITIS
  6. PSEUDOEPHEDRINE HCL [Suspect]
     Indication: COUGH
  7. CARBINOXAMINE MALEATE [Suspect]
     Indication: COUGH
  8. ATROPINE [Suspect]
     Indication: NASOPHARYNGITIS

REACTIONS (1)
  - SUDDEN INFANT DEATH SYNDROME [None]
